FAERS Safety Report 22014152 (Version 1)
Quarter: 2023Q1

REPORT INFORMATION
  Report Type: Spontaneous
  Country: IL (occurrence: IL)
  Receive Date: 20230221
  Receipt Date: 20230221
  Transmission Date: 20230418
  Serious: Yes (Hospitalization)
  Sender: FDA-Public Use
  Company Number: IL-AMNEAL PHARMACEUTICALS-2023-AMRX-00578

PATIENT
  Age: 75 Year
  Sex: Male

DRUGS (1)
  1. LEVETIRACETAM [Suspect]
     Active Substance: LEVETIRACETAM
     Indication: Epilepsy
     Dosage: UNK
     Route: 065

REACTIONS (4)
  - General physical health deterioration [Recovering/Resolving]
  - Cognitive disorder [Recovering/Resolving]
  - Normal pressure hydrocephalus [Unknown]
  - Gait disturbance [Recovering/Resolving]
